FAERS Safety Report 21305721 (Version 2)
Quarter: 2022Q3

REPORT INFORMATION
  Report Type: Spontaneous
  Country: US (occurrence: US)
  Receive Date: 20220908
  Receipt Date: 20220909
  Transmission Date: 20221026
  Serious: No
  Sender: FDA-Public Use
  Company Number: US-BRISTOL-MYERS SQUIBB COMPANY-2022-102004

PATIENT
  Age: 19 Year
  Sex: Female

DRUGS (1)
  1. ORENCIA [Suspect]
     Active Substance: ABATACEPT
     Indication: Behcet^s syndrome
     Dosage: EVERY 4 WEEKS
     Route: 058
     Dates: start: 20220810

REACTIONS (2)
  - Drug ineffective for unapproved indication [Unknown]
  - Infectious mononucleosis [Unknown]
